FAERS Safety Report 8878707 (Version 1)
Quarter: 2012Q4

REPORT INFORMATION
  Report Type: 
  Country: US (occurrence: US)
  Receive Date: 20121026
  Receipt Date: 20121026
  Transmission Date: 20130627
  Serious: Yes (Hospitalization, Other)
  Sender: FDA-Public Use
  Company Number: US-AMGEN-USASP2012068082

PATIENT
  Age: 66 Year
  Sex: Female

DRUGS (1)
  1. ENBREL [Suspect]
     Indication: RHEUMATOID ARTHRITIS
     Dosage: 50 mg, qwk
     Dates: start: 2008

REACTIONS (5)
  - Uterine cancer [Recovered/Resolved]
  - Pulmonary mass [Not Recovered/Not Resolved]
  - Alopecia [Not Recovered/Not Resolved]
  - Contusion [Not Recovered/Not Resolved]
  - Nodule [Not Recovered/Not Resolved]
